FAERS Safety Report 23959389 (Version 4)
Quarter: 2025Q4

REPORT INFORMATION
  Report Type: Report from Study
  Country: US (occurrence: US)
  Receive Date: 20240611
  Receipt Date: 20251124
  Transmission Date: 20260117
  Serious: Yes (Other)
  Sender: TAKEDA
  Company Number: US-TAKEDA-2015BLT001793

PATIENT
  Age: 67 Year
  Sex: Female

DRUGS (3)
  1. HUMAN IMMUNOGLOBULIN G [Suspect]
     Active Substance: HUMAN IMMUNOGLOBULIN G
     Indication: Immunodeficiency common variable
     Dosage: UNK UNK, MONTHLY
     Dates: start: 201507
  2. HUMAN IMMUNOGLOBULIN G [Suspect]
     Active Substance: HUMAN IMMUNOGLOBULIN G
     Indication: Primary immunodeficiency syndrome
     Dosage: 14 GRAM, 1/WEEK
  3. UNSPECIFIED INGREDIENT [Suspect]
     Active Substance: UNSPECIFIED INGREDIENT
     Indication: Product used for unknown indication
     Dosage: UNK

REACTIONS (10)
  - Scleroderma [Unknown]
  - Fatigue [Unknown]
  - Bone disorder [Unknown]
  - Joint swelling [Unknown]
  - Glycosylated haemoglobin increased [Unknown]
  - Vaccination site mass [Unknown]
  - Vaccination site bruising [Unknown]
  - Raynaud^s phenomenon [Unknown]
  - Calcinosis [Unknown]
  - Bacterial infection [Recovering/Resolving]
